FAERS Safety Report 9586397 (Version 3)
Quarter: 2014Q1

REPORT INFORMATION
  Report Type: Report from Study
  Country: IE (occurrence: IE)
  Receive Date: 20131003
  Receipt Date: 20140205
  Transmission Date: 20141002
  Serious: Yes (Hospitalization, Other)
  Sender: FDA-Public Use
  Company Number: IE-ALEXION PHARMACEUTICALS INC.-A201302500

PATIENT
  Age: 51 Year
  Sex: Female

DRUGS (9)
  1. SOLIRIS [Suspect]
     Indication: PAROXYSMAL NOCTURNAL HAEMOGLOBINURIA
     Dosage: UNK
     Route: 042
  2. SOLIRIS [Suspect]
     Dosage: 900 MG, UNK
     Route: 042
     Dates: start: 20111125
  3. VALTRAX [Concomitant]
  4. DUODERM DRESSING [Concomitant]
  5. NEXIUM [Concomitant]
  6. GAVISCON SATCHES [Concomitant]
  7. DIPROSALIC CREAM [Concomitant]
  8. CALVEPEN 666 [Concomitant]
  9. ZOTON [Concomitant]
     Dosage: 30 MG, QD

REACTIONS (8)
  - Pain [Unknown]
  - Shock [Unknown]
  - Haemoglobin decreased [Unknown]
  - Infusion related reaction [Unknown]
  - Pallor [Unknown]
  - Cold sweat [Unknown]
  - Respiratory rate increased [Unknown]
  - Chills [Unknown]
